FAERS Safety Report 21705844 (Version 1)
Quarter: 2022Q4

REPORT INFORMATION
  Report Type: Spontaneous
  Country: US (occurrence: None)
  Receive Date: 20221208
  Receipt Date: 20221208
  Transmission Date: 20230113
  Serious: Yes (Other)
  Sender: FDA-Public Use
  Company Number: None

PATIENT
  Age: 63 Year
  Sex: Female
  Weight: 67.5 kg

DRUGS (4)
  1. LAGEVRIO [Suspect]
     Active Substance: MOLNUPIRAVIR
     Indication: COVID-19
     Dosage: FREQUENCY : TWICE A DAY;?
     Route: 048
     Dates: start: 20221206, end: 20221207
  2. Gabapentin 150 PO PRN [Concomitant]
     Dates: start: 20121201
  3. Effexor EX 150mg PO once daily [Concomitant]
     Dates: start: 20121201
  4. Trazodone 150mg PO once daily [Concomitant]
     Dates: start: 20181201

REACTIONS (2)
  - Restless legs syndrome [None]
  - Drug intolerance [None]

NARRATIVE: CASE EVENT DATE: 20221206
